FAERS Safety Report 11895072 (Version 1)
Quarter: 2016Q1

REPORT INFORMATION
  Report Type: Spontaneous
  Country: US (occurrence: US)
  Receive Date: 20160107
  Receipt Date: 20160107
  Transmission Date: 20160526
  Serious: No
  Sender: FDA-Public Use
  Company Number: US-BAYER-2015-498654

PATIENT
  Sex: Female

DRUGS (3)
  1. BAYER PRO ULTRA OMEGA-3 [Suspect]
     Active Substance: CHOLECALCIFEROL\OMEGA-3 FATTY ACIDS
     Dosage: 2 DF, QD
     Route: 048
  2. ALEVE [Suspect]
     Active Substance: NAPROXEN SODIUM
     Indication: NASOPHARYNGITIS
     Dosage: SOMETIMES TOOK 3 DF AS A DOSAGE.
     Route: 048
  3. ALEVE [Suspect]
     Active Substance: NAPROXEN SODIUM
     Indication: ANALGESIC THERAPY
     Dosage: PRN
     Route: 048

REACTIONS (5)
  - Wrong technique in product usage process [None]
  - Drug effect incomplete [None]
  - Product use issue [None]
  - Dysgeusia [None]
  - Drug ineffective [None]
